FAERS Safety Report 9198075 (Version 1)
Quarter: 2013Q1

REPORT INFORMATION
  Report Type: Spontaneous
  Country: GB (occurrence: GB)
  Receive Date: 20130329
  Receipt Date: 20130329
  Transmission Date: 20140127
  Serious: Yes (Hospitalization)
  Sender: FDA-Public Use
  Company Number: PHHY2013GB028239

PATIENT
  Age: 35 Year
  Sex: Female

DRUGS (5)
  1. OMEPRAZOLE [Suspect]
     Dosage: 40 MG, QD
     Route: 048
  2. PROPRANOLOL [Suspect]
     Dosage: 10 MG, QD
     Route: 048
  3. THIAMINE [Concomitant]
     Dosage: 50 MG, QD
  4. VITAMIN B [Concomitant]
     Dosage: 2 TDS
  5. SENNA [Concomitant]
     Dosage: 150 MG, QD

REACTIONS (9)
  - Alcohol use [Unknown]
  - Feeling guilty [Unknown]
  - Obsessive-compulsive disorder [Unknown]
  - Gait disturbance [Unknown]
  - Thinking abnormal [Unknown]
  - Delusional perception [Unknown]
  - Confusional state [Unknown]
  - Hallucination [Unknown]
  - Depressed mood [Unknown]
